FAERS Safety Report 8845262 (Version 1)
Quarter: 2012Q4

REPORT INFORMATION
  Report Type: Spontaneous
  Country: US (occurrence: None)
  Receive Date: 20121005
  Receipt Date: 20121005
  Transmission Date: 20130627
  Serious: Yes (Hospitalization)
  Sender: FDA-Public Use
  Company Number: 2012PROUSA02038

PATIENT
  Age: 74 Year
  Sex: Male

DRUGS (1)
  1. PROVENGE (SIPULEUCEL-T) SUSPENSION, 250ML [Suspect]
     Indication: PROSTATE CANCER METASTATIC
     Dosage: 250 ml, single, intravenous
     Route: 042
     Dates: start: 20120913, end: 20120913

REACTIONS (5)
  - Haematochezia [None]
  - Chills [None]
  - Anaemia [None]
  - Nausea [None]
  - Pyrexia [None]
